FAERS Safety Report 9006589 (Version 3)
Quarter: 2013Q1

REPORT INFORMATION
  Report Type: Spontaneous
  Country: JP (occurrence: None)
  Receive Date: 20121227
  Receipt Date: 20130205
  Transmission Date: 20140127
  Serious: Yes (Other)
  Sender: FDA-Public Use
  Company Number: 2012SP004990

PATIENT
  Age: 62 Year
  Sex: Female

DRUGS (7)
  1. FLUOROURACIL (FLUOROURACIL) [Suspect]
     Indication: INVASIVE LOBULAR BREAST CARCINOMA
  2. DOXORUBICIN (DOXORUBICIN) (DOXORUBICIN) [Suspect]
     Indication: INVASIVE LOBULAR BREAST CARCINOMA
  3. PACLITAXEL (PACLITAXEL) [Suspect]
     Indication: INVASIVE LOBULAR BREAST CARCINOMA
  4. CYCLOPHOSPHAMIDE (CYCLOPHOSPHAMIDE) [Suspect]
  5. TAMOXIFEN [Suspect]
     Indication: BREAST CANCER
     Route: 048
  6. ANASTROZOLE (ANASTROZOLE) [Suspect]
     Route: 048
  7. EXEMESTANE [Suspect]
     Indication: BREAST CANCER
     Route: 048

REACTIONS (2)
  - Second primary malignancy [None]
  - Myelodysplastic syndrome [None]
